FAERS Safety Report 26149086 (Version 1)
Quarter: 2025Q4

REPORT INFORMATION
  Report Type: Spontaneous
  Country: CN (occurrence: CN)
  Receive Date: 20251212
  Receipt Date: 20251212
  Transmission Date: 20260117
  Serious: Yes (Life-Threatening, Hospitalization, Disabling)
  Sender: MACLEODS
  Company Number: CN-MLMSERVICE-20251124-PI724573-00200-1

PATIENT

DRUGS (5)
  1. LEVOTHYROXINE [Suspect]
     Active Substance: LEVOTHYROXINE
     Indication: Hypothyroidism
     Route: 065
  2. TRIAMCINOLONE ACETONIDE [Suspect]
     Active Substance: TRIAMCINOLONE ACETONIDE
     Indication: Pityriasis rosea
     Dosage: 6 WEEKS
     Route: 061
  3. HALOMETASONE [Suspect]
     Active Substance: HALOMETASONE
     Indication: Pityriasis rosea
     Dosage: 5 G X 5 TUBES, 6 WEEKS
     Route: 061
  4. OLOPATADINE [Concomitant]
     Active Substance: OLOPATADINE
     Route: 048
  5. ECONAZOLE [Concomitant]
     Active Substance: ECONAZOLE
     Dosage: 15 G X 2 TUBES
     Route: 061

REACTIONS (2)
  - Adrenocortical insufficiency acute [Recovering/Resolving]
  - Secondary adrenocortical insufficiency [Recovering/Resolving]
